FAERS Safety Report 6111435-3 (Version None)
Quarter: 2009Q1

REPORT INFORMATION
  Report Type: 
  Country: None (occurrence: None)
  Receive Date: 20090309
  Receipt Date: 20090225
  Transmission Date: 20090719
  Serious: Yes (Hospitalization, Other)
  Sender: FDA-Public Use
  Company Number: ADE2009-0449

PATIENT
  Age: 34 Year
  Sex: Female

DRUGS (2)
  1. CEFUROXIME [Suspect]
     Indication: URINARY TRACT INFECTION
  2. CIPROFLOXACIN [Suspect]
     Indication: URINARY TRACT INFECTION

REACTIONS (5)
  - ABDOMINAL PAIN [None]
  - IUD MIGRATION [None]
  - NAUSEA [None]
  - NO THERAPEUTIC RESPONSE [None]
  - STAPHYLOCOCCAL SEPSIS [None]
